FAERS Safety Report 4630830-2 (Version None)
Quarter: 2005Q2

REPORT INFORMATION
  Report Type: 
  Country: None (occurrence: None)
  Receive Date: 20050406
  Receipt Date: 20050329
  Transmission Date: 20051028
  Serious: Yes (Hospitalization)
  Sender: FDA-Public Use
  Company Number: TPA2005A00365

PATIENT
  Age: 72 Year
  Sex: Female

DRUGS (3)
  1. ACTOS [Suspect]
     Dosage: PER ORAL
     Route: 048
  2. HUMULIN 70/30 [Suspect]
     Dosage: 40 U QAM + 35 QPM, 1 IN 1 D, ORAL
     Route: 048
  3. FORTEO [Suspect]
     Indication: OSTEOPOROSIS
     Dosage: 20 MCG, SUBCUTANEOUS
     Route: 058
     Dates: start: 20040728

REACTIONS (12)
  - ARTHRITIS [None]
  - BLOOD CHOLESTEROL INCREASED [None]
  - CATARACT [None]
  - FALL [None]
  - FOOT FRACTURE [None]
  - IMPAIRED HEALING [None]
  - JOINT RANGE OF MOTION DECREASED [None]
  - OSTEOPOROSIS [None]
  - SHOULDER ARTHROPLASTY [None]
  - STRESS FRACTURE [None]
  - UPPER LIMB FRACTURE [None]
  - WEIGHT INCREASED [None]
